FAERS Safety Report 8303865 (Version 3)
Quarter: 2014Q1

REPORT INFORMATION
  Report Type: Spontaneous
  Country: US (occurrence: US)
  Receive Date: 20111221
  Receipt Date: 20140124
  Transmission Date: 20141002
  Serious: Yes (Hospitalization)
  Sender: FDA-Public Use
  Company Number: US-BAYER-2011-119869

PATIENT
  Age: 17 Year
  Sex: Female
  Weight: 57.14 kg

DRUGS (14)
  1. YAZ [Suspect]
     Dosage: UNK
     Dates: start: 200805, end: 200807
  2. AZITHROMYCIN [Concomitant]
     Dosage: 250 MG, UNK
  3. URSODIOL [Concomitant]
     Dosage: 300 MG, UNK
  4. HYDROCODONE W/APAP [Concomitant]
     Dosage: 10-500 MG TABLETS, 10 DISPENSED
  5. PHENERGAN [Concomitant]
     Dosage: AS NEEDED
  6. AXERT [Concomitant]
     Dosage: 6.25 MG, UNK
  7. ELAVIL [Concomitant]
     Dosage: 50 MG, DAILY
  8. PREDNISONE [Concomitant]
     Dosage: 20 MG, UNK
  9. RELPAX [Concomitant]
     Indication: MIGRAINE
     Dosage: AS NEEDED
  10. OMEPRAZOLE [Concomitant]
     Dosage: TWICE DAILY
  11. ACTIGALL [Concomitant]
     Dosage: 300 MG, BID
  12. COLAZAL [Concomitant]
     Dosage: 750 MG, TID
  13. SEROQUEL [Concomitant]
     Dosage: 200 MG, DAILY
  14. PULMICORT [Concomitant]

REACTIONS (3)
  - Gallbladder disorder [None]
  - Injury [None]
  - Cholecystitis chronic [None]
